FAERS Safety Report 6627634-8 (Version None)
Quarter: 2010Q1

REPORT INFORMATION
  Report Type: 
  Country: None (occurrence: None)
  Receive Date: 20100311
  Receipt Date: 20100127
  Transmission Date: 20100710
  Serious: No
  Sender: FDA-Public Use
  Company Number: US-KINGPHARMUSA00001-K201000109

PATIENT
  Sex: Male
  Weight: 117.91 kg

DRUGS (5)
  1. EMBEDA [Suspect]
     Indication: BACK PAIN
     Dosage: 20 MG, QAM
     Route: 048
     Dates: start: 20100105, end: 20100106
  2. FLAVOCOXID [Concomitant]
     Dosage: 500 MG, BID
     Route: 048
  3. ULTRAM ER [Concomitant]
     Indication: BACK PAIN
     Dosage: UNK
     Route: 048
  4. LIDODERM [Concomitant]
     Indication: BACK PAIN
     Dosage: UNK
     Route: 048
  5. SKELAXIN [Concomitant]
     Indication: BACK PAIN
     Dosage: 800 MG, Q8HR
     Route: 048

REACTIONS (2)
  - HEADACHE [None]
  - VISION BLURRED [None]
